FAERS Safety Report 17427955 (Version 1)
Quarter: 2020Q1

REPORT INFORMATION
  Report Type: Spontaneous
  Country: CA (occurrence: CA)
  Receive Date: 20200217
  Receipt Date: 20200217
  Transmission Date: 20200409
  Serious: Yes (Other)
  Sender: FDA-Public Use
  Company Number: CA-TEVA-2020-CA-1184475

PATIENT
  Age: 42 Year
  Sex: Female
  Weight: 81 kg

DRUGS (31)
  1. OXYCODONE [Suspect]
     Active Substance: OXYCODONE
     Indication: PRODUCT USED FOR UNKNOWN INDICATION
     Route: 065
  2. CALCIUM + VITAMIN D3 [Concomitant]
     Active Substance: CALCIUM CARBONATE\CHOLECALCIFEROL
  3. PANTOLOC [Concomitant]
     Active Substance: PANTOPRAZOLE SODIUM
  4. CIMZIA [Suspect]
     Active Substance: CERTOLIZUMAB PEGOL
     Route: 058
  5. ORENCIA [Suspect]
     Active Substance: ABATACEPT
     Indication: PRODUCT USED FOR UNKNOWN INDICATION
     Route: 065
  6. TYLENOL [Concomitant]
     Active Substance: ACETAMINOPHEN
  7. ZOPICLONE [Concomitant]
     Active Substance: ZOPICLONE
  8. ARAVA [Suspect]
     Active Substance: LEFLUNOMIDE
     Indication: PRODUCT USED FOR UNKNOWN INDICATION
     Route: 065
  9. ENBREL [Suspect]
     Active Substance: ETANERCEPT
     Indication: RHEUMATOID ARTHRITIS
     Route: 058
  10. PANTOPRAZOLE [Concomitant]
     Active Substance: PANTOPRAZOLE
  11. METHOTREXATE. [Suspect]
     Active Substance: METHOTREXATE
     Indication: PRODUCT USED FOR UNKNOWN INDICATION
     Route: 065
  12. DESOGESTREL/ETHINYL ESTRADIOL [Concomitant]
     Active Substance: DESOGESTREL\ETHINYL ESTRADIOL
  13. REACTINE [Concomitant]
  14. VITAMIN D [Concomitant]
     Active Substance: VITAMIN D NOS
  15. OXYCODONE [Suspect]
     Active Substance: OXYCODONE
     Route: 065
  16. ACETAMINOPHEN. [Suspect]
     Active Substance: ACETAMINOPHEN
     Indication: PRODUCT USED FOR UNKNOWN INDICATION
     Route: 065
  17. ACTEMRA [Suspect]
     Active Substance: TOCILIZUMAB
     Indication: PRODUCT USED FOR UNKNOWN INDICATION
     Route: 065
  18. CIMZIA [Suspect]
     Active Substance: CERTOLIZUMAB PEGOL
     Route: 058
  19. SIMPONI [Suspect]
     Active Substance: GOLIMUMAB
     Indication: PRODUCT USED FOR UNKNOWN INDICATION
     Route: 058
  20. ERGOCALCIFEROL. [Concomitant]
     Active Substance: ERGOCALCIFEROL
  21. FISH OIL [Concomitant]
     Active Substance: FISH OIL
  22. LEFLUNOMIDE. [Suspect]
     Active Substance: LEFLUNOMIDE
     Indication: PRODUCT USED FOR UNKNOWN INDICATION
     Route: 065
  23. CIMZIA [Suspect]
     Active Substance: CERTOLIZUMAB PEGOL
     Indication: RHEUMATOID ARTHRITIS
     Route: 058
  24. IBUPROFEN. [Concomitant]
     Active Substance: IBUPROFEN
  25. PLAQUENIL [Concomitant]
     Active Substance: HYDROXYCHLOROQUINE SULFATE
  26. PREDNISONE. [Concomitant]
     Active Substance: PREDNISONE
  27. OXYCODONE [Suspect]
     Active Substance: OXYCODONE
     Route: 065
  28. CHLORHEXIDINE GLUCONATE ORAL RINSE [Suspect]
     Active Substance: CHLORHEXIDINE GLUCONATE
     Indication: PRODUCT USED FOR UNKNOWN INDICATION
     Route: 065
  29. COENZYME Q10 [Concomitant]
     Active Substance: UBIDECARENONE
  30. HYDROCHLOROQUINE [Concomitant]
     Active Substance: HYDROXYCHLOROQUINE SULFATE
  31. VITAMIN C [Concomitant]
     Active Substance: ASCORBIC ACID

REACTIONS (20)
  - Asthenia [Unknown]
  - Joint swelling [Unknown]
  - Lower respiratory tract infection [Unknown]
  - Pruritus [Unknown]
  - Sinusitis [Unknown]
  - Rash [Unknown]
  - Headache [Unknown]
  - Respiratory disorder [Unknown]
  - Body temperature increased [Unknown]
  - Night sweats [Unknown]
  - Peripheral swelling [Unknown]
  - Back pain [Unknown]
  - Diarrhoea [Unknown]
  - Urticaria [Unknown]
  - Abdominal pain upper [Unknown]
  - Muscle spasticity [Unknown]
  - Pain [Unknown]
  - Vomiting [Unknown]
  - Ear pain [Unknown]
  - Insomnia [Unknown]
